FAERS Safety Report 20491233 (Version 3)
Quarter: 2022Q2

REPORT INFORMATION
  Report Type: Report from Study
  Country: US (occurrence: US)
  Receive Date: 20220218
  Receipt Date: 20220425
  Transmission Date: 20220720
  Serious: No
  Sender: FDA-Public Use
  Company Number: US-MIRM-000240

PATIENT
  Age: 2 Year
  Sex: Male
  Weight: 12.701 kg

DRUGS (3)
  1. LIVMARLI [Suspect]
     Active Substance: MARALIXIBAT CHLORIDE
     Indication: Product used for unknown indication
     Route: 048
     Dates: start: 20211022
  2. 1328777 (GLOBALC3Sep19): Ursodiol [Concomitant]
     Indication: Product used for unknown indication
  3. 1328916 (GLOBALC3Sep19): Vitamin K [Concomitant]
     Indication: Product used for unknown indication

REACTIONS (1)
  - Faeces pale [Not Recovered/Not Resolved]
